FAERS Safety Report 10265182 (Version 2)
Quarter: 2014Q3

REPORT INFORMATION
  Report Type: Report from Study
  Country: NL (occurrence: NL)
  Receive Date: 20140627
  Receipt Date: 20140723
  Transmission Date: 20150326
  Serious: Yes (Other)
  Sender: FDA-Public Use
  Company Number: NL-CELGENEUS-114-50794-14062665

PATIENT
  Age: 77 Year
  Sex: Female
  Weight: 62 kg

DRUGS (5)
  1. GRANISETRON [Concomitant]
     Active Substance: GRANISETRON
     Indication: ANTIEMETIC SUPPORTIVE CARE
     Route: 065
     Dates: start: 20140408, end: 20140422
  2. VIDAZA [Suspect]
     Active Substance: AZACITIDINE
     Dosage: 75 MILLIGRAM/SQ. METER
     Route: 058
     Dates: start: 20140512, end: 20140520
  3. DILTIAZEM [Concomitant]
     Active Substance: DILTIAZEM
     Indication: PRODUCT USED FOR UNKNOWN INDICATION
     Route: 065
     Dates: start: 20140312
  4. VIDAZA [Suspect]
     Active Substance: AZACITIDINE
     Indication: ACUTE MYELOID LEUKAEMIA
     Dosage: 75 MILLIGRAM/SQ. METER
     Route: 058
     Dates: start: 20140414, end: 20140422
  5. CIPROXIN [Concomitant]
     Active Substance: CIPROFLOXACIN
     Indication: ANTIBIOTIC THERAPY
     Route: 065
     Dates: start: 20140408

REACTIONS (2)
  - Seborrhoeic keratosis [Unknown]
  - Haemoglobin decreased [Recovered/Resolved]

NARRATIVE: CASE EVENT DATE: 20140508
